FAERS Safety Report 7687422-0 (Version None)
Quarter: 2011Q3

REPORT INFORMATION
  Report Type: 
  Country: None (occurrence: None)
  Receive Date: 20110816
  Receipt Date: 20110802
  Transmission Date: 20111222
  Serious: Yes (Other)
  Sender: FDA-Public Use
  Company Number: PHHY2011BR70623

PATIENT
  Sex: Female
  Weight: 51 kg

DRUGS (6)
  1. GLUCOBAY [Concomitant]
     Indication: DIABETES MELLITUS
     Dosage: 50 MG, HALF TABLET
  2. METFORMIN HCL [Concomitant]
     Dosage: 500 MG, ONE TABLET
     Route: 048
  3. OSCAL D [Concomitant]
     Dosage: 1 DF  PER DAY
     Route: 048
  4. DIOVAN [Suspect]
     Indication: BLOOD PRESSURE
     Dosage: 80 MG, UNK
     Route: 048
  5. PANTOPRAZOLE [Concomitant]
     Dosage: 40 MG, QD
     Route: 048
  6. CLOPIDOGREL BISULFATE [Concomitant]
     Indication: ANTICOAGULANT THERAPY
     Dosage: 1 DF A DAY
     Route: 048

REACTIONS (3)
  - CEREBROVASCULAR ACCIDENT [None]
  - BLOOD PRESSURE INCREASED [None]
  - BLOOD PRESSURE FLUCTUATION [None]
